FAERS Safety Report 13773073 (Version 1)
Quarter: 2017Q3

REPORT INFORMATION
  Report Type: Spontaneous
  Country: CA (occurrence: CA)
  Receive Date: 20170720
  Receipt Date: 20170720
  Transmission Date: 20171127
  Serious: Yes (Other)
  Sender: FDA-Public Use
  Company Number: CA-PFIZER INC-2016366754

PATIENT
  Age: 49 Year
  Sex: Male
  Weight: 123 kg

DRUGS (12)
  1. ANDROGEL [Concomitant]
     Active Substance: TESTOSTERONE
     Dosage: 5 G , 1X/DAY
     Route: 061
  2. SANDOSTATIN [Suspect]
     Active Substance: OCTREOTIDE ACETATE
     Indication: PITUITARY TUMOUR
     Dosage: 20 MG, EVERY 4 WEEKS (28 DAYS)
     Route: 030
     Dates: start: 200909
  3. COLACE [Concomitant]
     Active Substance: DOCUSATE SODIUM
     Dosage: 100 MG, DAILY
     Route: 048
     Dates: start: 200903
  4. ZOPICLONE [Concomitant]
     Active Substance: ZOPICLONE
     Dosage: 7.5 MG, AS NEEDED
  5. SOMAVERT [Suspect]
     Active Substance: PEGVISOMANT
     Indication: ACROMEGALY
     Dosage: 10 MG, 1X/DAY
     Route: 058
     Dates: start: 20160601
  6. SANDOSTATIN [Suspect]
     Active Substance: OCTREOTIDE ACETATE
     Indication: ACROMEGALY
     Dosage: 10 MG, MONTHLY
     Route: 030
     Dates: start: 20160906
  7. EFFEXOR [Concomitant]
     Active Substance: VENLAFAXINE HYDROCHLORIDE
     Dosage: 150 MG, DAILY
     Route: 048
     Dates: start: 201511
  8. VITAMIN D [Concomitant]
     Active Substance: CHOLECALCIFEROL
     Dosage: 1000 IU, WEEKLY ON SUNDAY
  9. SOMAVERT [Suspect]
     Active Substance: PEGVISOMANT
     Indication: ADJUVANT THERAPY
     Dosage: REDUCED DOSE
     Route: 058
  10. SOMAVERT [Suspect]
     Active Substance: PEGVISOMANT
     Dosage: 10 MG, 1X/DAY
     Route: 058
     Dates: end: 20170702
  11. EFFEXOR [Concomitant]
     Active Substance: VENLAFAXINE HYDROCHLORIDE
     Dosage: 225 MG, DAILY
     Route: 048
  12. SANDOSTATIN [Suspect]
     Active Substance: OCTREOTIDE ACETATE
     Dosage: 20 MG, EVERY 4 WEEKS (28 DAYS), NEXT DOSE ON 13JUL2017
     Route: 030

REACTIONS (11)
  - Injection site haematoma [Unknown]
  - Hyperhidrosis [Unknown]
  - Arthralgia [Unknown]
  - Drug dose omission [Unknown]
  - Musculoskeletal stiffness [Not Recovered/Not Resolved]
  - Gallbladder disorder [Unknown]
  - Ligament sprain [Recovered/Resolved]
  - Cholelithiasis [Unknown]
  - Injection site bruising [Recovered/Resolved]
  - Pain [Unknown]
  - Injection site erythema [Recovered/Resolved]

NARRATIVE: CASE EVENT DATE: 201606
